FAERS Safety Report 9421063 (Version 1)
Quarter: 2013Q3

REPORT INFORMATION
  Report Type: Report from Study
  Country: FR (occurrence: FR)
  Receive Date: 20130725
  Receipt Date: 20130725
  Transmission Date: 20140515
  Serious: Yes (Death, Other)
  Sender: FDA-Public Use
  Company Number: FR-PFIZER INC-2013213021

PATIENT
  Age: 47 Year
  Sex: Male

DRUGS (6)
  1. PREDNISOLONE [Concomitant]
     Indication: IMMUNOSUPPRESSANT DRUG THERAPY
     Dosage: UNK
  2. RIFAMPICIN [Suspect]
     Indication: TUBERCULOSIS
     Dosage: UNK
  3. ISONIAZID [Concomitant]
     Indication: TUBERCULOSIS
     Dosage: UNK
  4. ETHAMBUTOL [Concomitant]
     Indication: TUBERCULOSIS
     Dosage: UNK
  5. MOXIFLOXACIN [Concomitant]
     Indication: TUBERCULOSIS
     Dosage: UNK
  6. TACROLIMUS [Concomitant]
     Indication: IMMUNOSUPPRESSANT DRUG THERAPY
     Dosage: UNK

REACTIONS (1)
  - Transplant rejection [Fatal]
